FAERS Safety Report 12830465 (Version 1)
Quarter: 2016Q4

REPORT INFORMATION
  Report Type: Spontaneous
  Country: US (occurrence: US)
  Receive Date: 20161007
  Receipt Date: 20161007
  Transmission Date: 20170207
  Serious: No
  Sender: FDA-Public Use
  Company Number: US-SA-2016SA144622

PATIENT
  Age: 49 Year
  Sex: Female

DRUGS (5)
  1. TOPIRAMATE. [Concomitant]
     Active Substance: TOPIRAMATE
  2. GABAPENTIN. [Concomitant]
     Active Substance: GABAPENTIN
  3. AUBAGIO [Suspect]
     Active Substance: TERIFLUNOMIDE
     Indication: MULTIPLE SCLEROSIS
     Route: 048
  4. AMLODIPINE BESILATE [Concomitant]
     Active Substance: AMLODIPINE BESYLATE
  5. CALCIUM PLUS VITAMIN D3 [Concomitant]
     Dosage: CACIUM 600 + D3

REACTIONS (4)
  - Hypoaesthesia [Unknown]
  - Abdominal discomfort [Unknown]
  - Paraesthesia [Unknown]
  - Headache [Unknown]
